FAERS Safety Report 5401413-1 (Version None)
Quarter: 2007Q3

REPORT INFORMATION
  Report Type: 
  Country: None (occurrence: None)
  Receive Date: 20070731
  Receipt Date: 20070720
  Transmission Date: 20080115
  Serious: Yes (Death)
  Sender: FDA-Public Use
  Company Number: IT-MERCK-0707ITA00040

PATIENT

DRUGS (3)
  1. CANCIDAS [Suspect]
     Indication: PROPHYLAXIS
     Route: 065
  2. CANCIDAS [Concomitant]
     Indication: FUNGAL INFECTION
     Route: 041
  3. CANCIDAS [Concomitant]
     Route: 041

REACTIONS (3)
  - DEATH [None]
  - DRUG INEFFECTIVE [None]
  - FUNGAL INFECTION [None]
